FAERS Safety Report 16856348 (Version 3)
Quarter: 2020Q4

REPORT INFORMATION
  Report Type: Spontaneous
  Country: US (occurrence: US)
  Receive Date: 20190926
  Receipt Date: 20201215
  Transmission Date: 20210113
  Serious: Yes (Other)
  Sender: FDA-Public Use
  Company Number: US-GILEAD-2019-0429576

PATIENT
  Age: 54 Year
  Sex: Female
  Weight: 65.31 kg

DRUGS (34)
  1. EVOTAZ [Concomitant]
     Active Substance: ATAZANAVIR SULFATE\COBICISTAT
  2. TIVICAY [Concomitant]
     Active Substance: DOLUTEGRAVIR SODIUM
  3. WELCHOL [Concomitant]
     Active Substance: COLESEVELAM HYDROCHLORIDE
  4. GABAPENTIN. [Concomitant]
     Active Substance: GABAPENTIN
  5. EPIVIR [Concomitant]
     Active Substance: LAMIVUDINE
  6. NORVIR [Concomitant]
     Active Substance: RITONAVIR
  7. ZIAGEN [Concomitant]
     Active Substance: ABACAVIR SULFATE
  8. HYDROCODONE [Concomitant]
     Active Substance: HYDROCODONE
  9. SULFAMETHOXAZOLE [Concomitant]
     Active Substance: SULFAMETHOXAZOLE
  10. NAPROSYN [Concomitant]
     Active Substance: NAPROXEN
  11. SEROSTIN [Concomitant]
  12. IBUPROFEN. [Concomitant]
     Active Substance: IBUPROFEN
  13. AMOXICILLIN. [Concomitant]
     Active Substance: AMOXICILLIN
  14. CHANTIX [Concomitant]
     Active Substance: VARENICLINE TARTRATE
  15. ERGOCALCIFEROL. [Concomitant]
     Active Substance: ERGOCALCIFEROL
  16. PROVENTIL HFA [Concomitant]
     Active Substance: ALBUTEROL SULFATE
  17. ROPINIROLE. [Concomitant]
     Active Substance: ROPINIROLE
  18. GEMFIBROZIL. [Concomitant]
     Active Substance: GEMFIBROZIL
  19. TRUVADA [Suspect]
     Active Substance: EMTRICITABINE\TENOFOVIR DISOPROXIL FUMARATE
     Indication: HIV INFECTION
     Dosage: UNK
     Route: 048
     Dates: start: 20160415, end: 2018
  20. TIZANIDINE. [Concomitant]
     Active Substance: TIZANIDINE
  21. SPIRIVA [Concomitant]
     Active Substance: TIOTROPIUM BROMIDE MONOHYDRATE
  22. LYRICA [Concomitant]
     Active Substance: PREGABALIN
  23. AMITRIPTYLINE [Concomitant]
     Active Substance: AMITRIPTYLINE
  24. ATRIPLA [Suspect]
     Active Substance: EFAVIRENZ\EMTRICITABINE\TENOFOVIR DISOPROXIL FUMARATE
     Indication: HIV INFECTION
     Dosage: UNK
     Route: 048
     Dates: start: 20100723, end: 2012
  25. AMITIZA [Concomitant]
     Active Substance: LUBIPROSTONE
  26. MACROBID [CLARITHROMYCIN] [Concomitant]
     Active Substance: CLARITHROMYCIN
  27. LINZESS [Concomitant]
     Active Substance: LINACLOTIDE
  28. SIMVASTATIN. [Concomitant]
     Active Substance: SIMVASTATIN
  29. EPZICOM [Concomitant]
     Active Substance: ABACAVIR SULFATE\LAMIVUDINE
  30. REYATAZ [Concomitant]
     Active Substance: ATAZANAVIR SULFATE
  31. TRIUMEQ [Concomitant]
     Active Substance: ABACAVIR SULFATE\DOLUTEGRAVIR SODIUM\LAMIVUDINE
  32. NAPROSYN [Concomitant]
     Active Substance: NAPROXEN
  33. ULTRAM [Concomitant]
     Active Substance: TRAMADOL HYDROCHLORIDE
  34. ZOLPIDEM [Concomitant]
     Active Substance: ZOLPIDEM TARTRATE

REACTIONS (17)
  - Renal impairment [Unknown]
  - Anhedonia [Not Recovered/Not Resolved]
  - Fracture [Not Recovered/Not Resolved]
  - Osteoporosis [Not Recovered/Not Resolved]
  - Anxiety [Not Recovered/Not Resolved]
  - Pain [Not Recovered/Not Resolved]
  - Quality of life decreased [Not Recovered/Not Resolved]
  - Femur fracture [Unknown]
  - Tibia fracture [Unknown]
  - Emotional distress [Not Recovered/Not Resolved]
  - Decreased activity [Not Recovered/Not Resolved]
  - Spinal fracture [Unknown]
  - Chronic kidney disease [Not Recovered/Not Resolved]
  - Fibula fracture [Unknown]
  - Bedridden [Not Recovered/Not Resolved]
  - Economic problem [Not Recovered/Not Resolved]
  - Osteopenia [Not Recovered/Not Resolved]

NARRATIVE: CASE EVENT DATE: 20170215
